APPROVED DRUG PRODUCT: BACLOFEN
Active Ingredient: BACLOFEN
Strength: 25MG/5ML
Dosage Form/Route: SUSPENSION;ORAL
Application: A217252 | Product #001 | TE Code: AB
Applicant: ANI PHARMACEUTICALS INC
Approved: Jun 8, 2023 | RLD: No | RS: No | Type: RX